FAERS Safety Report 9642162 (Version 1)
Quarter: 2013Q4

REPORT INFORMATION
  Report Type: Spontaneous
  Country: US (occurrence: US)
  Receive Date: 20131023
  Receipt Date: 20131023
  Transmission Date: 20140711
  Serious: No
  Sender: FDA-Public Use
  Company Number: US-B.I. PHARMACEUTICALS,INC./RIDGEFIELD-2013-BI-32457BP

PATIENT
  Age: 46 Year
  Sex: Male
  Weight: 95 kg

DRUGS (10)
  1. JENTADUETO [Suspect]
     Dosage: STRENGTH: 2.5 MG / 500 MG; DAILY DOSE: 5.0 MG / 1000 MG
     Route: 048
     Dates: start: 20130814, end: 20130826
  2. XANAX [Concomitant]
     Dosage: 3 MG
     Route: 048
  3. METOPROLOL [Concomitant]
     Dosage: 100 MG
     Route: 048
  4. BENAZEPRIL [Concomitant]
     Dosage: 40 MG
     Route: 048
  5. ALBUTEROL HFA [Concomitant]
     Dosage: (INHALATION SPRAY)
     Route: 055
  6. METHYLIN [Concomitant]
     Dosage: 60 MG
     Route: 048
  7. METFORMIN [Concomitant]
     Dosage: 1500 MG
     Route: 048
  8. GABAPENTIN [Concomitant]
     Dosage: 1200 MG
     Route: 048
  9. GLIMEPIRIDE [Concomitant]
     Dosage: 6 MG
     Route: 048
  10. PRAVASTSTIN [Concomitant]
     Dosage: 40 MG
     Route: 048

REACTIONS (1)
  - Diarrhoea [Recovered/Resolved]
